FAERS Safety Report 5584379-3 (Version None)
Quarter: 2008Q1

REPORT INFORMATION
  Report Type: 
  Country: None (occurrence: None)
  Receive Date: 20080108
  Receipt Date: 20080102
  Transmission Date: 20080703
  Serious: Yes (Hospitalization)
  Sender: FDA-Public Use
  Company Number: GB-PURDUE-GBR_2007_0003373

PATIENT
  Age: 72 Year
  Sex: Male

DRUGS (2)
  1. HEPARIN [Concomitant]
     Indication: THROMBOSIS PROPHYLAXIS
     Route: 065
  2. OXYCONTIN [Suspect]
     Indication: ARTHRALGIA
     Dosage: UNK, BID
     Route: 048
     Dates: start: 20071001

REACTIONS (3)
  - BLADDER SPASM [None]
  - PAIN [None]
  - POLLAKIURIA [None]
